FAERS Safety Report 21933188 (Version 1)
Quarter: 2023Q1

REPORT INFORMATION
  Report Type: Spontaneous
  Country: None (occurrence: US)
  Receive Date: 20230131
  Receipt Date: 20230131
  Transmission Date: 20230418
  Serious: No
  Sender: FDA-Public Use
  Company Number: US-Ascend Therapeutics US, LLC-2137324

PATIENT
  Age: 67 Year
  Sex: Female
  Weight: 51.364 kg

DRUGS (4)
  1. ESTROGEL [Suspect]
     Active Substance: ESTRADIOL
     Indication: Menopausal symptoms
     Route: 061
     Dates: start: 2012, end: 2022
  2. ESTROGEL [Suspect]
     Active Substance: ESTRADIOL
  3. ESTROGEL [Suspect]
     Active Substance: ESTRADIOL
     Route: 061
     Dates: start: 2012, end: 2022
  4. ESTROGEL [Suspect]
     Active Substance: ESTRADIOL
     Route: 061
     Dates: start: 2022

REACTIONS (3)
  - Incorrect dose administered by product [None]
  - Product dispensing issue [None]
  - Product administered at inappropriate site [None]

NARRATIVE: CASE EVENT DATE: 20120101
